FAERS Safety Report 21759622 (Version 1)
Quarter: 2022Q4

REPORT INFORMATION
  Report Type: Report from Study
  Country: US (occurrence: US)
  Receive Date: 20221221
  Receipt Date: 20221221
  Transmission Date: 20230113
  Serious: Yes (Other)
  Sender: FDA-Public Use
  Company Number: US-CLOVIS ONCOLOGY-CLO-2022-000624

PATIENT
  Sex: Male

DRUGS (6)
  1. RUBRACA [Suspect]
     Active Substance: RUCAPARIB CAMSYLATE
     Indication: Pancreatic carcinoma
     Dosage: 500 MILLIGRAM, BID
     Route: 048
     Dates: start: 20220510, end: 2022
  2. RUBRACA [Suspect]
     Active Substance: RUCAPARIB CAMSYLATE
     Indication: Gene mutation
     Dosage: 500 MILLIGRAM, BID
     Route: 048
     Dates: start: 20220519, end: 2022
  3. RUBRACA [Suspect]
     Active Substance: RUCAPARIB CAMSYLATE
     Indication: Pancreatic carcinoma
     Dosage: 500 MG AM/250 MG PM
     Dates: start: 2022, end: 20220708
  4. RUBRACA [Suspect]
     Active Substance: RUCAPARIB CAMSYLATE
     Dosage: 500 MILLIGRAM, BID
     Route: 048
     Dates: start: 20220713
  5. RUBRACA [Suspect]
     Active Substance: RUCAPARIB CAMSYLATE
     Dosage: 500 MG AM/250 MG PM
     Dates: start: 2022
  6. RUBRACA [Suspect]
     Active Substance: RUCAPARIB CAMSYLATE
     Dosage: 500 MILLIGRAM, BID
     Route: 048
     Dates: start: 20220802, end: 2022

REACTIONS (5)
  - Surgery [Unknown]
  - Renal disorder [Unknown]
  - Pyrexia [Unknown]
  - Anaemia [Unknown]
  - Product use in unapproved indication [Unknown]
